FAERS Safety Report 5286111-X (Version None)
Quarter: 2007Q1

REPORT INFORMATION
  Report Type: 
  Country: None (occurrence: None)
  Receive Date: 20070104
  Receipt Date: 20061017
  Transmission Date: 20070707
  Serious: No
  Sender: FDA-Public Use
  Company Number: BDI-008751

PATIENT
  Age: 61 Year
  Sex: Male
  Weight: 72.73 kg

DRUGS (2)
  1. MULTIHANCE [Suspect]
     Indication: ANGIOGRAM
     Dosage: 50 ML ONCE IV
     Route: 042
     Dates: start: 20061017, end: 20061017
  2. MULTIHANCE [Suspect]
     Indication: NUCLEAR MAGNETIC RESONANCE IMAGING
     Dosage: 50 ML ONCE IV
     Route: 042
     Dates: start: 20061017, end: 20061017

REACTIONS (3)
  - COUGH [None]
  - SNEEZING [None]
  - VOMITING [None]
